FAERS Safety Report 15937726 (Version 2)
Quarter: 2020Q1

REPORT INFORMATION
  Report Type: Spontaneous
  Country: US (occurrence: US)
  Receive Date: 20190208
  Receipt Date: 20200227
  Transmission Date: 20200409
  Serious: No
  Sender: FDA-Public Use
  Company Number: US-AEGERION PHARMACEUTICAL, INC-AEGR004083

PATIENT
  Age: 61 Year
  Sex: Female
  Weight: 60.77 kg

DRUGS (1)
  1. MYALEPT [Suspect]
     Active Substance: METRELEPTIN
     Indication: LIPODYSTROPHY ACQUIRED
     Dosage: 2.5 MG/0.5 ML, QD
     Route: 058
     Dates: start: 20180725

REACTIONS (3)
  - Product preparation issue [Unknown]
  - Product use complaint [Unknown]
  - Product administration error [Unknown]

NARRATIVE: CASE EVENT DATE: 20181208
